FAERS Safety Report 22989146 (Version 2)
Quarter: 2023Q4

REPORT INFORMATION
  Report Type: Report from Study
  Country: US (occurrence: US)
  Receive Date: 20230927
  Receipt Date: 20231026
  Transmission Date: 20240110
  Serious: No
  Sender: FDA-Public Use
  Company Number: US-ACADIA PHARMACEUTICALS INC.-ACA-2023-PIM-003876

PATIENT
  Sex: Male

DRUGS (14)
  1. NUPLAZID [Suspect]
     Active Substance: PIMAVANSERIN TARTRATE
     Indication: Parkinson^s disease psychosis
     Dosage: 34 MILLIGRAM, QD
     Route: 048
     Dates: start: 20230830, end: 202309
  2. NUPLAZID [Suspect]
     Active Substance: PIMAVANSERIN TARTRATE
     Indication: Hallucination
     Dosage: 34 MILLIGRAM, QD
     Route: 048
  3. NUPLAZID [Suspect]
     Active Substance: PIMAVANSERIN TARTRATE
     Indication: Delusion
  4. CARBIDOPA\LEVODOPA [Concomitant]
     Active Substance: CARBIDOPA\LEVODOPA
  5. METHYLPHENIDATE [Concomitant]
     Active Substance: METHYLPHENIDATE
  6. VILAZODONE [Concomitant]
     Active Substance: VILAZODONE
  7. DORZOLAMIDE [Concomitant]
     Active Substance: DORZOLAMIDE
  8. ACETAZOLAMIDE [Concomitant]
     Active Substance: ACETAZOLAMIDE
  9. KLONOPIN [Concomitant]
     Active Substance: CLONAZEPAM
  10. MEMANTINE [Concomitant]
     Active Substance: MEMANTINE
  11. DONEPEZIL [Concomitant]
     Active Substance: DONEPEZIL
  12. HYDROCODONE [Concomitant]
     Active Substance: HYDROCODONE
  13. AMLODIPINE [Concomitant]
     Active Substance: AMLODIPINE BESYLATE
  14. VITAMIN D2 [Concomitant]
     Active Substance: ERGOCALCIFEROL

REACTIONS (4)
  - Adverse drug reaction [Recovered/Resolved]
  - Asthenia [Unknown]
  - Balance disorder [Recovered/Resolved]
  - Dizziness [Recovered/Resolved]

NARRATIVE: CASE EVENT DATE: 20230101
